FAERS Safety Report 10509232 (Version 2)
Quarter: 2014Q4

REPORT INFORMATION
  Report Type: Spontaneous
  Country: US (occurrence: US)
  Receive Date: 20141009
  Receipt Date: 20141014
  Transmission Date: 20150528
  Serious: Yes (Hospitalization, Other)
  Sender: FDA-Public Use
  Company Number: US-GILEAD-2014-0117412

PATIENT
  Age: 64 Year
  Sex: Female

DRUGS (3)
  1. SILDENAFIL CITRATE. [Concomitant]
     Active Substance: SILDENAFIL CITRATE
     Dosage: 80 MG, TID
     Route: 065
     Dates: start: 20120927
  2. LETAIRIS [Suspect]
     Active Substance: AMBRISENTAN
     Indication: PULMONARY HYPERTENSION
     Dosage: 5 MG, QD
     Route: 065
     Dates: start: 20130403
  3. LETAIRIS [Suspect]
     Active Substance: AMBRISENTAN
     Dosage: UNK

REACTIONS (4)
  - Oxygen saturation decreased [Unknown]
  - Cerebrovascular accident [Unknown]
  - Unevaluable event [Unknown]
  - Dyspnoea [Unknown]

NARRATIVE: CASE EVENT DATE: 20141001
